FAERS Safety Report 12408793 (Version 1)
Quarter: 2016Q2

REPORT INFORMATION
  Report Type: Spontaneous
  Country: NO (occurrence: NO)
  Receive Date: 20160526
  Receipt Date: 20160526
  Transmission Date: 20160815
  Serious: Yes (Other)
  Sender: FDA-Public Use
  Company Number: NO-SA-2016SA096942

PATIENT
  Age: 48 Year
  Sex: Male
  Weight: 62 kg

DRUGS (4)
  1. FISH OIL [Concomitant]
     Active Substance: FISH OIL
  2. AUBAGIO [Suspect]
     Active Substance: TERIFLUNOMIDE
     Indication: MULTIPLE SCLEROSIS
     Route: 065
     Dates: start: 201501, end: 201506
  3. MAGNESIUM [Concomitant]
     Active Substance: MAGNESIUM
  4. VIVAL [Concomitant]
     Active Substance: DIAZEPAM
     Indication: GASTROINTESTINAL STROMAL TUMOUR
     Dosage: APPROXIMATELY TWICE. WEEK. WHEN I CAN NOT SLEEP, AND WHEN I GET NERVOUS
     Dates: start: 2012

REACTIONS (3)
  - Depression [Recovered/Resolved]
  - Suicidal ideation [Recovered/Resolved]
  - Product use issue [Unknown]

NARRATIVE: CASE EVENT DATE: 201501
